FAERS Safety Report 10159147 (Version 3)
Quarter: 2014Q2

REPORT INFORMATION
  Report Type: Spontaneous
  Country: HU (occurrence: HU)
  Receive Date: 20140508
  Receipt Date: 20140524
  Transmission Date: 20141212
  Serious: Yes (Death, Hospitalization, Other)
  Sender: FDA-Public Use
  Company Number: HU-AMGEN-HUNSP2014032872

PATIENT
  Age: 59 Year
  Sex: Male
  Weight: 79 kg

DRUGS (5)
  1. ENBREL [Suspect]
     Indication: ANKYLOSING SPONDYLITIS
     Dosage: 50 MG, QWK
     Route: 058
     Dates: start: 20130508
  2. CONTROLOC                          /01263201/ [Concomitant]
     Indication: PROPHYLAXIS
     Dosage: UNK
  3. CONCOR [Concomitant]
     Indication: HYPERTENSION
     Dosage: UNK
  4. CALCIFEROL                         /00107901/ [Concomitant]
     Indication: OSTEOPOROSIS
     Dosage: UNK
  5. CALCISEDRON D [Concomitant]
     Indication: OSTEOPOROSIS
     Dosage: UNK

REACTIONS (6)
  - Cardiac arrest [Unknown]
  - Pancreatitis acute [Fatal]
  - Alcohol withdrawal syndrome [Unknown]
  - Tuberculin test positive [Unknown]
  - Bacterial toxaemia [Fatal]
  - Sepsis [Fatal]
